FAERS Safety Report 23467283 (Version 3)
Quarter: 2024Q1

REPORT INFORMATION
  Report Type: Spontaneous
  Country: US (occurrence: US)
  Receive Date: 20240201
  Receipt Date: 20240320
  Transmission Date: 20240409
  Serious: No
  Sender: FDA-Public Use
  Company Number: US-PFIZER INC-202300316507

PATIENT
  Age: 69 Year
  Sex: Male
  Weight: 83.91 kg

DRUGS (1)
  1. VARENICLINE TARTRATE [Suspect]
     Active Substance: VARENICLINE TARTRATE
     Indication: Smoking cessation therapy
     Dosage: 1 MG
     Dates: start: 20230815, end: 20230825

REACTIONS (2)
  - Cerebral disorder [Recovered/Resolved]
  - Drug ineffective [Unknown]
